FAERS Safety Report 11253188 (Version 1)
Quarter: 2015Q3

REPORT INFORMATION
  Report Type: Spontaneous
  Country: US (occurrence: None)
  Receive Date: 20150708
  Receipt Date: 20150708
  Transmission Date: 20151125
  Serious: No
  Sender: FDA-Public Use
  Company Number: None

PATIENT
  Age: 48 Year
  Sex: Female

DRUGS (1)
  1. PLEGRIDY [Suspect]
     Active Substance: PEGINTERFERON BETA-1A
     Indication: MULTIPLE SCLEROSIS
     Dosage: Q14D
     Route: 058
     Dates: start: 20141229, end: 20150701

REACTIONS (2)
  - Injection site reaction [None]
  - Depression [None]

NARRATIVE: CASE EVENT DATE: 20150706
